FAERS Safety Report 9249433 (Version 1)
Quarter: 2013Q2

REPORT INFORMATION
  Report Type: Report from Study
  Country: AU (occurrence: AU)
  Receive Date: 20130423
  Receipt Date: 20130423
  Transmission Date: 20140414
  Serious: Yes (Other)
  Sender: FDA-Public Use
  Company Number: PHHY2012AU128272

PATIENT
  Age: 61 Year
  Sex: Female

DRUGS (2)
  1. GILENYA [Suspect]
     Indication: MULTIPLE SCLEROSIS
     Route: 048
     Dates: start: 201103
  2. TEGRETOL [Concomitant]

REACTIONS (6)
  - Muscle atrophy [Unknown]
  - Hemiparesis [Unknown]
  - Tendon rupture [Unknown]
  - Movement disorder [Unknown]
  - Fall [Unknown]
  - Weight decreased [Unknown]
